FAERS Safety Report 19267451 (Version 1)
Quarter: 2021Q2

REPORT INFORMATION
  Report Type: Spontaneous
  Country: US (occurrence: US)
  Receive Date: 20210517
  Receipt Date: 20210517
  Transmission Date: 20210717
  Serious: No
  Sender: FDA-Public Use
  Company Number: US-SA-2021SA155367

PATIENT
  Age: 36 Year
  Sex: Female

DRUGS (2)
  1. ENOXAPARIN SODIUM ? WINTHROP [Suspect]
     Active Substance: ENOXAPARIN SODIUM
     Indication: HIGH RISK PREGNANCY
     Dosage: 0.6 MG, QD
     Route: 065
  2. ENOXAPARIN SODIUM ? WINTHROP [Suspect]
     Active Substance: ENOXAPARIN SODIUM
     Dosage: 0.4 MG, QD
     Route: 065
     Dates: start: 202009

REACTIONS (2)
  - Asthenia [Unknown]
  - Maternal exposure during pregnancy [Unknown]
